FAERS Safety Report 9300789 (Version 1)
Quarter: 2013Q2

REPORT INFORMATION
  Report Type: Spontaneous
  Country: US (occurrence: None)
  Receive Date: 20130520
  Receipt Date: 20130520
  Transmission Date: 20140414
  Serious: Yes (Other)
  Sender: FDA-Public Use
  Company Number: None

PATIENT
  Age: 34 Year
  Sex: Female
  Weight: 91.63 kg

DRUGS (1)
  1. TOPIRAMATE [Suspect]
     Dosage: 1 TABLET DAY
     Dates: start: 20130517, end: 20130517

REACTIONS (4)
  - Aphasia [None]
  - Presyncope [None]
  - Palpitations [None]
  - Dyspnoea [None]
